FAERS Safety Report 24463806 (Version 1)
Quarter: 2024Q4

REPORT INFORMATION
  Report Type: Report from Study
  Country: US (occurrence: US)
  Receive Date: 20241018
  Receipt Date: 20241018
  Transmission Date: 20250114
  Serious: No
  Sender: ROCHE
  Company Number: US-ROCHE-3479097

PATIENT
  Age: 45 Year
  Sex: Female
  Weight: 73.94 kg

DRUGS (9)
  1. XOLAIR [Suspect]
     Active Substance: OMALIZUMAB
     Indication: Idiopathic urticaria
     Dosage: RECEIVED ONE INJECTION IN EACH ARM
     Route: 058
     Dates: start: 2020
  2. XOLAIR [Suspect]
     Active Substance: OMALIZUMAB
     Dosage: RECEIVED ONE INJECTION IN EACH ARM
     Route: 058
     Dates: start: 201806, end: 2020
  3. BENADRYL [Concomitant]
     Active Substance: DIPHENHYDRAMINE HYDROCHLORIDE
     Indication: Urticaria
     Route: 048
     Dates: start: 202310
  4. XYZAL [Concomitant]
     Active Substance: LEVOCETIRIZINE DIHYDROCHLORIDE
     Indication: Urticaria
     Dosage: TAKES ONE IN THE MORNING AND ONE IN THE EVENING
     Route: 048
     Dates: start: 202311
  5. WELLBUTRIN [Concomitant]
     Active Substance: BUPROPION HYDROCHLORIDE
     Indication: Anxiety
     Route: 048
  6. WELLBUTRIN [Concomitant]
     Active Substance: BUPROPION HYDROCHLORIDE
     Indication: Depression
  7. LEXAPRO [Concomitant]
     Active Substance: ESCITALOPRAM OXALATE
     Indication: Anxiety
     Route: 048
     Dates: start: 20231218
  8. LEXAPRO [Concomitant]
     Active Substance: ESCITALOPRAM OXALATE
     Indication: Depression
  9. SEASONALE [Concomitant]
     Active Substance: ETHINYL ESTRADIOL\LEVONORGESTREL
     Indication: Endometriosis
     Dosage: DOSAGE: 0.15MG TO 30MCG (91 PER TABLET)
     Route: 048
     Dates: start: 2011

REACTIONS (4)
  - Urticaria [Recovering/Resolving]
  - Off label use [Unknown]
  - Pruritus [Unknown]
  - Illness [Unknown]

NARRATIVE: CASE EVENT DATE: 20200101
